FAERS Safety Report 7134578-4 (Version None)
Quarter: 2010Q4

REPORT INFORMATION
  Report Type: 
  Country: None (occurrence: None)
  Receive Date: 20101129
  Receipt Date: 20101129
  Transmission Date: 20110411
  Serious: Yes (Life-Threatening, Hospitalization)
  Sender: FDA-Public Use
  Company Number: None

PATIENT
  Sex: Female

DRUGS (3)
  1. ETHYOL [Suspect]
     Indication: RADIATION INJURY
     Dosage: ETHYOL - ADMINISTERED BY INJECTION BY HER ONCOLOGIST, DR STANLEY WALKER
  2. CHEMO DRUGS [Concomitant]
  3. RADIATION [Concomitant]

REACTIONS (3)
  - BLOOD PRESSURE DECREASED [None]
  - INCOHERENT [None]
  - STEVENS-JOHNSON SYNDROME [None]
